FAERS Safety Report 18377579 (Version 1)
Quarter: 2020Q4

REPORT INFORMATION
  Report Type: Report from Study
  Country: US (occurrence: US)
  Receive Date: 20201013
  Receipt Date: 20201013
  Transmission Date: 20210114
  Serious: Yes (Hospitalization, Other)
  Sender: FDA-Public Use
  Company Number: US-MYLANLABS-2020M1007311

PATIENT
  Age: 23 Year
  Sex: Female
  Weight: 45.7 kg

DRUGS (9)
  1. AZITHROMYCIN ANHYDROUS. [Concomitant]
     Active Substance: AZITHROMYCIN ANHYDROUS
     Indication: CYSTIC FIBROSIS RELATED DIABETES
     Dosage: 500 MILLIGRAM, QD
     Route: 048
     Dates: start: 20190717
  2. AZITHROMYCIN ANHYDROUS. [Concomitant]
     Active Substance: AZITHROMYCIN ANHYDROUS
     Dosage: UNK
     Route: 048
     Dates: start: 20200106
  3. TOBI [Suspect]
     Active Substance: TOBRAMYCIN
     Indication: INFECTIVE PULMONARY EXACERBATION OF CYSTIC FIBROSIS
     Dosage: 300 MILLIGRAM, BID
     Dates: start: 20191112
  4. ALBUTEROL                          /00139501/ [Concomitant]
     Active Substance: ALBUTEROL
     Indication: ASTHMA
  5. SPIRIVA [Concomitant]
     Active Substance: TIOTROPIUM BROMIDE MONOHYDRATE
     Indication: CYSTIC FIBROSIS RELATED DIABETES
     Dosage: 18 MICROGRAM, QD
     Dates: start: 20150318
  6. PULMOZYME [Concomitant]
     Active Substance: DORNASE ALFA
     Indication: CYSTIC FIBROSIS RELATED DIABETES
     Dosage: 2.5 MILLILITER, QD
     Dates: start: 20171208
  7. TOBI [Suspect]
     Active Substance: TOBRAMYCIN
     Indication: CYSTIC FIBROSIS
  8. ALBUTEROL                          /00139501/ [Concomitant]
     Active Substance: ALBUTEROL
     Indication: CYSTIC FIBROSIS RELATED DIABETES
     Dosage: 3 MILLILITER, PRN
     Dates: start: 20160525
  9. TOBRAMYCIN. [Concomitant]
     Active Substance: TOBRAMYCIN
     Indication: PSEUDOMONAS INFECTION
     Dosage: 300 MILLIGRAM, BID
     Dates: start: 20191112

REACTIONS (2)
  - Drug ineffective [Unknown]
  - Infective pulmonary exacerbation of cystic fibrosis [Recovering/Resolving]

NARRATIVE: CASE EVENT DATE: 20200106
